FAERS Safety Report 17938590 (Version 2)
Quarter: 2020Q3

REPORT INFORMATION
  Report Type: Spontaneous
  Country: CA (occurrence: CA)
  Receive Date: 20200624
  Receipt Date: 20200709
  Transmission Date: 20201103
  Serious: Yes (Other)
  Sender: FDA-Public Use
  Company Number: CA-ROCHE-2623208

PATIENT
  Sex: Female

DRUGS (11)
  1. CELLCEPT [Suspect]
     Active Substance: MYCOPHENOLATE MOFETIL\MYCOPHENOLATE MOFETIL HYDROCHLORIDE
     Indication: PRODUCT USED FOR UNKNOWN INDICATION
     Dosage: DRUG DOSE FIRST ADMINISTERED IS 250 MG MILLIGRAM(S),ONGOING
     Route: 065
  2. SULFATRIM [Concomitant]
     Active Substance: SULFAMETHOXAZOLE\TRIMETHOPRIM
     Dosage: ONGOING, MONDAY/WEDNESDAY/FRIDAY
     Route: 048
  3. PANTOPRAZOLE [Concomitant]
     Active Substance: PANTOPRAZOLE
     Dosage: DRUG DOSE FIRST ADMINISTERED IS 40 MG MILLIGRAM(S),ONGOING
     Route: 048
  4. PROLIA [Concomitant]
     Active Substance: DENOSUMAB
     Dosage: DRUG DOSE FIRST ADMINISTERED IS 1 ML MILLILITRE(S),ONGOING
     Route: 058
  5. XARELTO [Concomitant]
     Active Substance: RIVAROXABAN
     Dosage: ONGOING
     Route: 048
  6. APO HYDROXYQUINE [Concomitant]
     Active Substance: HYDROXYCHLOROQUINE SULFATE
     Dosage: DRUG DOSE FIRST ADMINISTERED IS 400 MG MILLIGRAM(S),ONGOING
     Route: 048
  7. PREDNISONE. [Concomitant]
     Active Substance: PREDNISONE
     Dosage: DRUG DOSE FIRST ADMINISTERED IS 20 MG MILLIGRAM(S),ONGOING
     Route: 048
  8. JAMP CALCIUM [Concomitant]
     Dosage: DRUG DOSE FIRST ADMINISTERED IS 500 MG MILLIGRAM(S),ONGOING
     Route: 048
  9. VENLAFAXINE XR [Concomitant]
     Active Substance: VENLAFAXINE HYDROCHLORIDE
     Dosage: ONGOING
     Route: 048
  10. CELLCEPT [Suspect]
     Active Substance: MYCOPHENOLATE MOFETIL\MYCOPHENOLATE MOFETIL HYDROCHLORIDE
     Route: 065
  11. JAMP VITAMIN D [Concomitant]
     Active Substance: CHOLECALCIFEROL
     Dosage: DRUG DOSE FIRST ADMINISTERED IS 10000 IU INTERNATIONAL UNIT(S),ONGOING
     Route: 048

REACTIONS (6)
  - Lung diffusion test decreased [Unknown]
  - Rash [Unknown]
  - Interstitial lung disease [Unknown]
  - Dermatomyositis [Unknown]
  - Polyarthritis [Unknown]
  - Sjogren^s syndrome [Unknown]
